FAERS Safety Report 16405304 (Version 2)
Quarter: 2019Q2

REPORT INFORMATION
  Report Type: Spontaneous
  Country: CN (occurrence: CN)
  Receive Date: 20190607
  Receipt Date: 20190612
  Transmission Date: 20190711
  Serious: Yes (Disabling, Other)
  Sender: FDA-Public Use
  Company Number: CN-009507513-1906CHN000723

PATIENT
  Age: 65 Year
  Sex: Male
  Weight: 56 kg

DRUGS (4)
  1. TIENAM [Suspect]
     Active Substance: CILASTATIN SODIUM\IMIPENEM
     Dosage: 1 GRAM, Q12H
     Dates: start: 20190430, end: 20190506
  2. TIENAM [Suspect]
     Active Substance: CILASTATIN SODIUM\IMIPENEM
     Indication: ANTI-INFECTIVE THERAPY
     Dosage: 0.5 GRAM, BID
     Route: 041
     Dates: start: 20190428, end: 20190429
  3. CEFODIZIME [Concomitant]
     Active Substance: CEFODIZIME SODIUM
     Indication: ANTI-INFECTIVE THERAPY
     Dosage: UNK
     Route: 041
     Dates: start: 201904, end: 201904
  4. SODIUM CHLORIDE. [Concomitant]
     Active Substance: SODIUM CHLORIDE
     Dosage: 100 MILLILITER
     Dates: start: 20190430, end: 20190506

REACTIONS (5)
  - Therapeutic product effect incomplete [Unknown]
  - Psychiatric symptom [Recovered/Resolved]
  - Delirium [Recovered/Resolved]
  - Hallucination [Recovered/Resolved]
  - Endocarditis [Unknown]

NARRATIVE: CASE EVENT DATE: 2019
